FAERS Safety Report 19514516 (Version 3)
Quarter: 2021Q3

REPORT INFORMATION
  Report Type: Spontaneous
  Country: US (occurrence: US)
  Receive Date: 20210710
  Receipt Date: 20210816
  Transmission Date: 20211014
  Serious: No
  Sender: FDA-Public Use
  Company Number: NVSC2021US149321

PATIENT
  Sex: Female

DRUGS (2)
  1. RECLAST [Suspect]
     Active Substance: ZOLEDRONIC ACID
     Indication: PRODUCT USED FOR UNKNOWN INDICATION
     Route: 065
  2. TYLENOL [Suspect]
     Active Substance: ACETAMINOPHEN
     Indication: PRODUCT USED FOR UNKNOWN INDICATION
     Dosage: 500 MG
     Route: 065

REACTIONS (9)
  - Musculoskeletal stiffness [Unknown]
  - Pain in jaw [Unknown]
  - Peripheral swelling [Unknown]
  - Back pain [Unknown]
  - Mobility decreased [Unknown]
  - Chest pain [Unknown]
  - Arthralgia [Unknown]
  - Influenza like illness [Unknown]
  - Malaise [Unknown]
